FAERS Safety Report 19779357 (Version 1)
Quarter: 2021Q3

REPORT INFORMATION
  Report Type: Spontaneous
  Country: DE (occurrence: DE)
  Receive Date: 20210902
  Receipt Date: 20210902
  Transmission Date: 20211014
  Serious: Yes (Other)
  Sender: FDA-Public Use
  Company Number: DE-ORGANON-O2108DEU002379

PATIENT
  Sex: Female
  Weight: 125 kg

DRUGS (4)
  1. LOSARTAN POTASSIUM. [Suspect]
     Active Substance: LOSARTAN POTASSIUM
     Indication: PRODUCT USED FOR UNKNOWN INDICATION
     Dosage: UNK
     Route: 065
     Dates: start: 2018
  2. FOSTER [PIROXICAM] [Suspect]
     Active Substance: PIROXICAM
     Indication: PRODUCT USED FOR UNKNOWN INDICATION
     Dosage: UNK (120/6)
     Route: 065
     Dates: start: 2020
  3. THYRONAJOD [Suspect]
     Active Substance: LEVOTHYROXINE SODIUM\POTASSIUM IODIDE
     Indication: PRODUCT USED FOR UNKNOWN INDICATION
     Dosage: UNK
     Route: 065
     Dates: start: 2005
  4. MIRENA [Concomitant]
     Active Substance: LEVONORGESTREL
     Indication: HORMONAL CONTRACEPTION
     Dosage: UNK (FOR MORE THAN 10 YEARS)
     Route: 015
     Dates: start: 200005

REACTIONS (7)
  - Musculoskeletal stiffness [Unknown]
  - Peripheral swelling [Unknown]
  - Limb discomfort [Unknown]
  - Muscular weakness [Unknown]
  - Thrombosis [Unknown]
  - Muscle tightness [Unknown]
  - Chest discomfort [Unknown]

NARRATIVE: CASE EVENT DATE: 20210310
